FAERS Safety Report 11259488 (Version 2)
Quarter: 2015Q3

REPORT INFORMATION
  Report Type: Spontaneous
  Country: AR (occurrence: AR)
  Receive Date: 20150710
  Receipt Date: 20150727
  Transmission Date: 20151125
  Serious: Yes (Hospitalization, Other)
  Sender: FDA-Public Use
  Company Number: CHPA2015AR008260

PATIENT
  Sex: Male

DRUGS (1)
  1. NICOTINELL [Suspect]
     Active Substance: NICOTINE
     Indication: SMOKING CESSATION THERAPY
     Dosage: 10-12 DAILY
     Route: 048
     Dates: end: 201503

REACTIONS (6)
  - Bacterial infection [Unknown]
  - Osteomyelitis bacterial [Unknown]
  - Femur fracture [Unknown]
  - Road traffic accident [Unknown]
  - Feeling of despair [Unknown]
  - Drug dependence [Unknown]

NARRATIVE: CASE EVENT DATE: 201503
